FAERS Safety Report 16895906 (Version 1)
Quarter: 2019Q4

REPORT INFORMATION
  Report Type: Spontaneous
  Country: FR (occurrence: FR)
  Receive Date: 20191008
  Receipt Date: 20191008
  Transmission Date: 20200122
  Serious: Yes (Other)
  Sender: FDA-Public Use
  Company Number: FR-US-PROVELL PHARMACEUTICALS LLC-9049676

PATIENT
  Age: 60 Year
  Sex: Male
  Weight: 96 kg

DRUGS (1)
  1. LEVOTHYROX 150 NF [Suspect]
     Active Substance: LEVOTHYROXINE SODIUM
     Indication: POST PROCEDURAL HYPOTHYROIDISM
     Dosage: ADDITIONAL DOSE OF 125 MCG ON AN UNKNOWN DATE IN 2017 ON EVEN DAYS AND 150 MCG ON ODD DAYS.
     Dates: start: 201706, end: 201906

REACTIONS (18)
  - Amnesia [Not Recovered/Not Resolved]
  - Vertigo [Not Recovered/Not Resolved]
  - Arrhythmia [Unknown]
  - Blood thyroid stimulating hormone decreased [Recovered/Resolved]
  - Aggression [Recovering/Resolving]
  - Fatigue [Not Recovered/Not Resolved]
  - Hyperthyroidism [Recovered/Resolved]
  - Abnormal behaviour [Unknown]
  - Sleep disorder [Not Recovered/Not Resolved]
  - Drug intolerance [Unknown]
  - Disturbance in attention [Not Recovered/Not Resolved]
  - Dizziness [Unknown]
  - Arthralgia [Not Recovered/Not Resolved]
  - Alopecia [Not Recovered/Not Resolved]
  - Nervousness [Unknown]
  - Somnolence [Not Recovered/Not Resolved]
  - Palpitations [Recovered/Resolved]
  - Overdose [Unknown]

NARRATIVE: CASE EVENT DATE: 2017
